FAERS Safety Report 18256442 (Version 1)
Quarter: 2020Q3

REPORT INFORMATION
  Report Type: Spontaneous
  Country: US (occurrence: US)
  Receive Date: 20200911
  Receipt Date: 20200911
  Transmission Date: 20201103
  Serious: Yes (Other)
  Sender: FDA-Public Use
  Company Number: US-PFIZER INC-2020345348

PATIENT
  Age: 64 Year
  Sex: Male

DRUGS (6)
  1. ALBUMIN [Suspect]
     Active Substance: ALBUMIN HUMAN
     Indication: PLASMAPHERESIS
     Dosage: 1350 ML, (5% SOLUTION, ADMINISTERED OVER 50 MINUTES)
  2. POTASSIUM [POTASSIUM CHLORIDE] [Concomitant]
     Active Substance: POTASSIUM CHLORIDE
     Indication: PLASMAPHERESIS
     Dosage: UNK
  3. MAGNESIUM SALT [Concomitant]
     Active Substance: MAGNESIUM
     Indication: PLASMAPHERESIS
     Dosage: UNK
  4. WATER BACTERIOSTATIC [Suspect]
     Active Substance: WATER
     Indication: MEDICATION DILUTION
     Dosage: 4 VOLUMES
  5. ALBUMIN [Suspect]
     Active Substance: ALBUMIN HUMAN
     Dosage: 189 ML, (5% SOLUTION, DILUTED ALBUMIN SOLUTION WAS ADMINISTERED OVER 27 MINUTES)
  6. CALCIUM CHLORIDE. [Concomitant]
     Active Substance: CALCIUM CHLORIDE
     Indication: PLASMAPHERESIS
     Dosage: UNK

REACTIONS (2)
  - Renal failure [Recovered/Resolved]
  - Haemolysis [Recovered/Resolved]
